FAERS Safety Report 6171842-X (Version None)
Quarter: 2009Q2

REPORT INFORMATION
  Report Type: 
  Country: None (occurrence: None)
  Receive Date: 20090424
  Receipt Date: 20090204
  Transmission Date: 20091009
  Serious: No
  Sender: FDA-Public Use
  Company Number: ALL1-2009-00257

PATIENT
  Age: 3 Year
  Sex: Female
  Weight: 14.5 kg

DRUGS (1)
  1. VYVANSE [Suspect]
     Dosage: 20 MG, ONE DOSE, ORAL
     Route: 048
     Dates: start: 20081201, end: 20081201

REACTIONS (2)
  - ACCIDENTAL DRUG INTAKE BY CHILD [None]
  - LOGORRHOEA [None]
